FAERS Safety Report 6119082-4 (Version None)
Quarter: 2009Q1

REPORT INFORMATION
  Report Type: 
  Country: None (occurrence: None)
  Receive Date: 20090316
  Receipt Date: 20090302
  Transmission Date: 20090719
  Serious: Yes (Death, Life-Threatening, Hospitalization)
  Sender: FDA-Public Use
  Company Number: KR-AVENTIS-200911159EU

PATIENT
  Age: 80 Year
  Sex: Female
  Weight: 35 kg

DRUGS (13)
  1. ENOXAPARIN SODIUM [Suspect]
     Route: 058
     Dates: start: 20090123, end: 20090126
  2. ASPIRIN [Concomitant]
     Route: 048
     Dates: start: 20010301
  3. TORSEMIDE [Concomitant]
     Dates: start: 20080530, end: 20090121
  4. NITROGLYCERIN [Concomitant]
     Dates: start: 20060127, end: 20090121
  5. LIPIDIL [Concomitant]
     Dates: start: 20051125, end: 20090123
  6. DIGOXIN [Concomitant]
     Dates: start: 20040202, end: 20090123
  7. LIPITOR [Concomitant]
     Dates: start: 20041220, end: 20090123
  8. WITH [Concomitant]
     Indication: PROPHYLAXIS
     Dates: start: 20040202, end: 20090123
  9. VASTINAN [Concomitant]
     Dates: start: 20040202, end: 20090123
  10. LASIX [Concomitant]
     Dates: start: 20090121, end: 20090125
  11. ATROVENT [Concomitant]
     Dates: start: 20090121, end: 20090126
  12. AMARYL [Concomitant]
     Dates: start: 20090123, end: 20090125
  13. CODEINE SUL TAB [Concomitant]
     Dates: start: 20090123, end: 20090123

REACTIONS (1)
  - CARDIAC FAILURE [None]
